FAERS Safety Report 12837817 (Version 3)
Quarter: 2016Q4

REPORT INFORMATION
  Report Type: Spontaneous
  Country: BE (occurrence: BE)
  Receive Date: 20161012
  Receipt Date: 20161027
  Transmission Date: 20170207
  Serious: Yes (Death)
  Sender: FDA-Public Use
  Company Number: BE-ROCHE-1828504

PATIENT
  Age: 1 Year
  Sex: Female

DRUGS (9)
  1. ROACTEMRA [Suspect]
     Active Substance: TOCILIZUMAB
     Indication: HYPERSENSITIVITY
     Route: 042
  2. NEORAL [Concomitant]
     Active Substance: CYCLOSPORINE
     Route: 065
     Dates: start: 20160812
  3. CLAFORAN (BELGIUM) [Concomitant]
     Route: 065
     Dates: start: 20160818
  4. TARGOCID [Concomitant]
     Active Substance: TEICOPLANIN
     Route: 065
     Dates: start: 20160830
  5. MEDROL [Concomitant]
     Active Substance: METHYLPREDNISOLONE
     Route: 065
     Dates: start: 20160803, end: 20160805
  6. CLAFORAN (BELGIUM) [Concomitant]
     Route: 065
     Dates: start: 20160808, end: 20160812
  7. VANCOMYCIN [Concomitant]
     Active Substance: VANCOMYCIN
     Route: 065
     Dates: start: 20160808, end: 20160812
  8. VANCOMYCIN [Concomitant]
     Active Substance: VANCOMYCIN
     Route: 065
     Dates: start: 20160818
  9. KINERET [Concomitant]
     Active Substance: ANAKINRA
     Route: 065
     Dates: start: 20160826

REACTIONS (3)
  - Death [Fatal]
  - Off label use [Fatal]
  - Hypersensitivity [Unknown]

NARRATIVE: CASE EVENT DATE: 20160910
